FAERS Safety Report 11058610 (Version 1)
Quarter: 2015Q2

REPORT INFORMATION
  Report Type: Spontaneous
  Country: US (occurrence: None)
  Receive Date: 20150422
  Receipt Date: 20150422
  Transmission Date: 20150821
  Serious: Yes (Hospitalization)
  Sender: FDA-Public Use
  Company Number: None

PATIENT
  Age: 52 Year
  Sex: Female
  Weight: 61.2 kg

DRUGS (2)
  1. IBUPROFEN. [Suspect]
     Active Substance: IBUPROFEN
     Indication: PAIN
     Route: 048
     Dates: start: 20150225, end: 20150301
  2. NAPROXEN. [Suspect]
     Active Substance: NAPROXEN
     Indication: PAIN
     Route: 048
     Dates: start: 20150201, end: 20150226

REACTIONS (5)
  - Peptic ulcer [None]
  - Anaemia [None]
  - Upper gastrointestinal haemorrhage [None]
  - Tumour haemorrhage [None]
  - Oesophageal varices haemorrhage [None]

NARRATIVE: CASE EVENT DATE: 20150301
